FAERS Safety Report 6607733-7 (Version None)
Quarter: 2010Q1

REPORT INFORMATION
  Report Type: 
  Country: None (occurrence: None)
  Receive Date: 20100301
  Receipt Date: 20100223
  Transmission Date: 20100710
  Serious: Yes (Hospitalization, Other)
  Sender: FDA-Public Use
  Company Number: US-JNJFOC-20070706034

PATIENT
  Sex: Male
  Weight: 131.54 kg

DRUGS (4)
  1. REMICADE [Suspect]
     Indication: CROHN'S DISEASE
     Route: 042
  2. REMICADE [Suspect]
     Route: 042
  3. REMICADE [Suspect]
     Route: 042
  4. PENTASA [Concomitant]

REACTIONS (10)
  - ABDOMINAL WALL ABSCESS [None]
  - ANASTOMOTIC LEAK [None]
  - CELLULITIS [None]
  - CROHN'S DISEASE [None]
  - METABOLIC ACIDOSIS [None]
  - OBSTRUCTIVE AIRWAYS DISORDER [None]
  - PERITONITIS [None]
  - RENAL FAILURE ACUTE [None]
  - RESPIRATORY FAILURE [None]
  - SEPSIS [None]
